FAERS Safety Report 22782479 (Version 3)
Quarter: 2023Q4

REPORT INFORMATION
  Report Type: Spontaneous
  Country: JP (occurrence: JP)
  Receive Date: 20230803
  Receipt Date: 20231124
  Transmission Date: 20240110
  Serious: Yes (Hospitalization)
  Sender: FDA-Public Use
  Company Number: JP-DSJP-DSJ-2023-130972

PATIENT
  Age: 66 Year
  Sex: Female

DRUGS (4)
  1. BEVACIZUMAB [Suspect]
     Active Substance: BEVACIZUMAB
     Indication: Rectosigmoid cancer recurrent
     Dosage: 400 MILLIGRAM
     Route: 041
     Dates: start: 20230615, end: 20230615
  2. DEXAMETHASONE SODIUM PHOSPHATE [Concomitant]
     Active Substance: DEXAMETHASONE SODIUM PHOSPHATE
     Dosage: 3.3 MILLIGRAM
     Route: 065
     Dates: start: 20220525, end: 20230615
  3. ALOXI [Concomitant]
     Active Substance: PALONOSETRON HYDROCHLORIDE
     Dosage: 0.75MG/50ML
     Route: 065
     Dates: start: 20220525, end: 20230615
  4. AMLODIPINE [Concomitant]
     Active Substance: AMLODIPINE BESYLATE
     Indication: Hypertension
     Dosage: 5MG/DAY
     Route: 048

REACTIONS (3)
  - Renal disorder [Recovered/Resolved]
  - Pyrexia [Unknown]
  - Jaundice [Recovered/Resolved]

NARRATIVE: CASE EVENT DATE: 20230616
